FAERS Safety Report 4474018-7 (Version None)
Quarter: 2004Q4

REPORT INFORMATION
  Report Type: 
  Country: None (occurrence: None)
  Receive Date: 20041008
  Receipt Date: 20040929
  Transmission Date: 20050328
  Serious: Yes (Hospitalization)
  Sender: FDA-Public Use
  Company Number: 04H-163-0275296-00

PATIENT
  Age: 9 Year
  Sex: Female

DRUGS (2)
  1. KETOROLAC TROMETHAMINE INJECTION (KETOROLAC TROMETHAMINE) (KETOROLAC T [Suspect]
     Indication: BACK PAIN
     Dosage: 30 MG
     Dates: start: 20040812
  2. ACETAMINOPHEN W/ CODEINE [Concomitant]

REACTIONS (5)
  - CONDITION AGGRAVATED [None]
  - CONVULSION [None]
  - DYSKINESIA [None]
  - GASTROOESOPHAGEAL REFLUX DISEASE [None]
  - MEDICATION ERROR [None]
